FAERS Safety Report 11412646 (Version 1)
Quarter: 2015Q3

REPORT INFORMATION
  Report Type: Spontaneous
  Country: US (occurrence: US)
  Receive Date: 20150821
  Receipt Date: 20150821
  Transmission Date: 20151125
  Serious: No
  Sender: FDA-Public Use
  Company Number: US-ELI_LILLY_AND_COMPANY-US201108006595

PATIENT
  Age: 62 Year
  Sex: Male

DRUGS (2)
  1. HUMULIN R [Suspect]
     Active Substance: INSULIN HUMAN
     Dosage: 175 U, UNKNOWN
     Dates: start: 20110805
  2. HUMULIN R [Suspect]
     Active Substance: INSULIN HUMAN
     Indication: TYPE 1 DIABETES MELLITUS
     Dosage: UNK, PRN
     Dates: start: 20110805

REACTIONS (8)
  - Blood glucose decreased [Unknown]
  - Hyperhidrosis [Unknown]
  - Confusional state [Unknown]
  - Decreased appetite [Unknown]
  - Mobility decreased [Unknown]
  - Eye swelling [Unknown]
  - Nervousness [Unknown]
  - Drug hypersensitivity [Unknown]

NARRATIVE: CASE EVENT DATE: 201108
